FAERS Safety Report 7939871-0 (Version None)
Quarter: 2011Q4

REPORT INFORMATION
  Report Type: 
  Country: None (occurrence: None)
  Receive Date: 20111125
  Receipt Date: 20111118
  Transmission Date: 20120403
  Serious: Yes (Other)
  Sender: FDA-Public Use
  Company Number: US-PFIZER INC-2011285438

PATIENT

DRUGS (2)
  1. PROGRAF [Suspect]
  2. VFEND [Suspect]

REACTIONS (1)
  - SKIN CANCER [None]
